FAERS Safety Report 5734728-8 (Version None)
Quarter: 2008Q2

REPORT INFORMATION
  Report Type: 
  Country: None (occurrence: None)
  Receive Date: 20080508
  Receipt Date: 20080508
  Transmission Date: 20081010
  Serious: Yes (Other)
  Sender: FDA-Public Use
  Company Number: None

PATIENT
  Age: 55 Year
  Sex: Female
  Weight: 77.1115 kg

DRUGS (2)
  1. CREST PRO HEALTH RINSE REFRESHING CLEAN CREST MINT [Suspect]
     Indication: BREATH ODOUR
     Dosage: 4 TSPS DAILY DENTAL
     Route: 004
     Dates: start: 20070810, end: 20080506
  2. CREST PRO HEALTH RINSE REFRESHING CLEAN CREST MINT [Suspect]
     Indication: GINGIVITIS
     Dosage: 4 TSPS DAILY DENTAL
     Route: 004
     Dates: start: 20070810, end: 20080506

REACTIONS (1)
  - TOOTH DISCOLOURATION [None]
